FAERS Safety Report 9027711 (Version 3)
Quarter: 2013Q2

REPORT INFORMATION
  Report Type: Spontaneous
  Country: DE (occurrence: DE)
  Receive Date: 20130124
  Receipt Date: 20130502
  Transmission Date: 20140414
  Serious: Yes (Other)
  Sender: FDA-Public Use
  Company Number: DE-AMGEN-DEUSP2013004857

PATIENT
  Age: 80 Year
  Sex: Male

DRUGS (11)
  1. ENBREL [Suspect]
     Indication: RHEUMATOID ARTHRITIS
     Dosage: 50 MG, WEEKLY
     Dates: start: 20040324
  2. ENBREL [Suspect]
     Dosage: UNK
  3. PROTAPHAN [Concomitant]
     Dosage: UNK
  4. ACTRAPID                           /00646001/ [Concomitant]
     Dosage: UNK
  5. BELOC ZOK [Concomitant]
     Dosage: UNK
  6. DOXAZOSIN [Concomitant]
     Dosage: UNK
  7. ASS [Concomitant]
     Dosage: UNK
  8. EXFORGE [Concomitant]
     Dosage: UNK
  9. AMLODIPINE [Concomitant]
     Dosage: UNK
  10. PLAVIX [Concomitant]
     Dosage: UNK
  11. FALITHROM [Concomitant]
     Dosage: UNK

REACTIONS (1)
  - Arteriosclerosis [Recovered/Resolved]
